FAERS Safety Report 19687379 (Version 2)
Quarter: 2021Q3

REPORT INFORMATION
  Report Type: Spontaneous
  Country: US (occurrence: US)
  Receive Date: 20210812
  Receipt Date: 20210831
  Transmission Date: 20211014
  Serious: Yes (Hospitalization)
  Sender: FDA-Public Use
  Company Number: US-B.I. PHARMACEUTICALS,INC./RIDGEFIELD-2021-BI-120443

PATIENT
  Age: 60 Year
  Sex: Female
  Weight: 59 kg

DRUGS (10)
  1. ABROCITINIB. [Concomitant]
     Active Substance: ABROCITINIB
     Indication: DERMATITIS ATOPIC
     Dosage: ONCE A DAY, ORAL
     Route: 048
     Dates: start: 20210414, end: 20210519
  2. ABROCITINIB. [Concomitant]
     Active Substance: ABROCITINIB
     Dates: start: 20210525
  3. VITAMIN B12 [Concomitant]
     Active Substance: CYANOCOBALAMIN
     Indication: VITAMIN SUPPLEMENTATION
     Dates: start: 202007
  4. MONTELUKAST [Concomitant]
     Active Substance: MONTELUKAST SODIUM
     Indication: COUGH
     Route: 050
     Dates: start: 2019
  5. BIOTIN [Concomitant]
     Active Substance: BIOTIN
     Indication: SUPPLEMENTATION THERAPY
     Route: 050
     Dates: start: 202009
  6. MOBIC [Suspect]
     Active Substance: MELOXICAM
     Indication: INTERVERTEBRAL DISC DEGENERATION
     Dosage: ONCE DAILY ORALLY 15 MG
     Route: 048
     Dates: start: 2018, end: 20210519
  7. AXCEL LORATIDINE [Concomitant]
     Active Substance: LORATADINE
     Indication: DERMATITIS ATOPIC
     Dates: start: 202007
  8. ASPIRIN [ACETYLSALICYLIC ACID] [Suspect]
     Active Substance: ASPIRIN
     Indication: CARDIOVASCULAR EVENT PROPHYLAXIS
     Dosage: ONCE DAILY ORALLY
     Route: 048
     Dates: start: 2011, end: 20210519
  9. ATORVASTATIN [Concomitant]
     Active Substance: ATORVASTATIN
     Indication: BLOOD CHOLESTEROL INCREASED
     Dates: start: 2014
  10. KETOROLAC TROMETHAMINE. [Suspect]
     Active Substance: KETOROLAC TROMETHAMINE
     Indication: BACK PAIN
     Dosage: 60 MG ONCE INTRAMUSCULARLY
     Route: 030
     Dates: start: 20210517, end: 20210517

REACTIONS (7)
  - Melaena [Recovered/Resolved]
  - Anaemia [Not Recovered/Not Resolved]
  - Gastric ulcer [Recovered/Resolved]
  - Back pain [Not Recovered/Not Resolved]
  - Nausea [Unknown]
  - Gastrointestinal haemorrhage [Recovered/Resolved]
  - Duodenal ulcer [Recovered/Resolved]

NARRATIVE: CASE EVENT DATE: 20210429
